FAERS Safety Report 22238403 (Version 1)
Quarter: 2023Q2

REPORT INFORMATION
  Report Type: Spontaneous
  Country: US (occurrence: US)
  Receive Date: 20230421
  Receipt Date: 20230421
  Transmission Date: 20230722
  Serious: No
  Sender: FDA-Public Use
  Company Number: US-009507513-2303USA010876

PATIENT
  Age: 44 Year
  Sex: Female

DRUGS (2)
  1. ISENTRESS [Suspect]
     Active Substance: RALTEGRAVIR POTASSIUM
     Indication: HIV infection
     Dosage: UNK
     Route: 048
  2. EMTRICITABINE\TENOFOVIR [Suspect]
     Active Substance: EMTRICITABINE\TENOFOVIR
     Indication: HIV infection
     Dosage: UNK
     Route: 048

REACTIONS (18)
  - Anhedonia [Unknown]
  - Somnolence [Unknown]
  - Insomnia [Unknown]
  - Mood altered [Unknown]
  - Depression [Unknown]
  - Disturbance in attention [Unknown]
  - Amnesia [Unknown]
  - Decreased interest [Unknown]
  - Depressed mood [Unknown]
  - Initial insomnia [Unknown]
  - Fatigue [Unknown]
  - Asthenia [Unknown]
  - Dyspnoea [Unknown]
  - Nightmare [Unknown]
  - Pain [Unknown]
  - Middle insomnia [Unknown]
  - Terminal insomnia [Unknown]
  - Product dose omission issue [Unknown]
